FAERS Safety Report 9334330 (Version 1)
Quarter: 2013Q2

REPORT INFORMATION
  Report Type: Spontaneous
  Country: US (occurrence: US)
  Receive Date: 20130606
  Receipt Date: 20130606
  Transmission Date: 20140414
  Serious: No
  Sender: FDA-Public Use
  Company Number: US-AMGEN-USASP2013017077

PATIENT
  Age: 82 Year
  Sex: Female

DRUGS (4)
  1. PROLIA [Suspect]
     Indication: OSTEOPOROSIS POSTMENOPAUSAL
     Dosage: 60 UNK, Q6MO
     Route: 058
     Dates: start: 20120708
  2. BENICAR [Concomitant]
     Dosage: UNK UNK, QD
     Route: 048
  3. ACETYLSALICYLIC ACID [Concomitant]
     Dosage: 81 MG, QD
     Route: 048
  4. CALCIUM [Concomitant]

REACTIONS (4)
  - Influenza like illness [Not Recovered/Not Resolved]
  - Bronchitis [Not Recovered/Not Resolved]
  - Back pain [Recovered/Resolved]
  - Pain in extremity [Recovered/Resolved]
